FAERS Safety Report 6780805-2 (Version None)
Quarter: 2010Q2

REPORT INFORMATION
  Report Type: 
  Country: None (occurrence: None)
  Receive Date: 20100621
  Receipt Date: 20100608
  Transmission Date: 20101027
  Serious: Yes (Other)
  Sender: FDA-Public Use
  Company Number: US-BAYER-201024970NA

PATIENT
  Sex: Female

DRUGS (1)
  1. MIRENA [Suspect]
     Indication: DRUG USE FOR UNKNOWN INDICATION
     Dosage: FREQUENT CONTINUOUS
     Route: 015
     Dates: start: 20060801, end: 20100401

REACTIONS (4)
  - ABORTION THREATENED [None]
  - DEVICE EXPULSION [None]
  - PREGNANCY WITH CONTRACEPTIVE DEVICE [None]
  - VAGINAL HAEMORRHAGE [None]
